FAERS Safety Report 6050160-4 (Version None)
Quarter: 2009Q1

REPORT INFORMATION
  Report Type: 
  Country: None (occurrence: None)
  Receive Date: 20090121
  Receipt Date: 20090121
  Transmission Date: 20090719
  Serious: Yes (Hospitalization)
  Sender: FDA-Public Use
  Company Number: None

PATIENT
  Sex: Female
  Weight: 55.9 kg

DRUGS (5)
  1. PEG-L ASPARAGINASE (K-H) [Suspect]
     Dosage: 3975 IU
  2. PREDNISONE TAB [Suspect]
     Dosage: 100 MG
  3. VINCRISTINE SULFATE [Suspect]
     Dosage: 8 MG
  4. DAUNORUBICIN HCL [Suspect]
     Dosage: 80 MG
  5. METHOTREXATE [Suspect]
     Dosage: 15 MG

REACTIONS (38)
  - ABDOMINAL PAIN [None]
  - ALANINE AMINOTRANSFERASE INCREASED [None]
  - AREFLEXIA [None]
  - AZOTAEMIA [None]
  - BLOOD LACTATE DEHYDROGENASE INCREASED [None]
  - BONE MARROW FAILURE [None]
  - BRADYCARDIA [None]
  - BRAIN DEATH [None]
  - BRAIN INJURY [None]
  - BRAIN OEDEMA [None]
  - CAECITIS [None]
  - CARDIAC ARREST [None]
  - CEREBRAL HAEMORRHAGE [None]
  - CEREBRAL INFARCTION [None]
  - CEREBRAL ISCHAEMIA [None]
  - CHILLS [None]
  - COMPUTERISED TOMOGRAM ABNORMAL [None]
  - CONVULSION [None]
  - DIALYSIS [None]
  - DYSPNOEA [None]
  - FLUID RETENTION [None]
  - GASTROINTESTINAL NECROSIS [None]
  - GENERAL PHYSICAL HEALTH DETERIORATION [None]
  - HAEMODYNAMIC INSTABILITY [None]
  - HYPOTENSION [None]
  - INFLAMMATION [None]
  - INTESTINAL INFARCTION [None]
  - ISCHAEMIC STROKE [None]
  - NUCLEAR MAGNETIC RESONANCE IMAGING BRAIN ABNORMAL [None]
  - OXYGEN SATURATION DECREASED [None]
  - PCO2 DECREASED [None]
  - PUPIL FIXED [None]
  - PUPILS UNEQUAL [None]
  - RENAL FAILURE ACUTE [None]
  - RESPIRATORY DISORDER [None]
  - THROMBOCYTOPENIA [None]
  - URINE OUTPUT DECREASED [None]
  - WHITE BLOOD CELL COUNT DECREASED [None]
